FAERS Safety Report 5642071-0 (Version None)
Quarter: 2008Q1

REPORT INFORMATION
  Report Type: 
  Country: None (occurrence: None)
  Receive Date: 20080131
  Receipt Date: 20071219
  Transmission Date: 20080703
  Serious: No
  Sender: FDA-Public Use
  Company Number: US200709006874

PATIENT
  Age: 64 Year
  Sex: Female
  Weight: 71.7 kg

DRUGS (5)
  1. BYETTA [Suspect]
     Indication: TYPE 2 DIABETES MELLITUS
     Dosage: 5, 10 UG, 2/D, SUBCUTANEOUS
     Route: 058
     Dates: start: 20050101, end: 20050101
  2. BYETTA [Suspect]
     Indication: TYPE 2 DIABETES MELLITUS
     Dosage: 5, 10 UG, 2/D, SUBCUTANEOUS
     Route: 058
     Dates: start: 20050101
  3. EXENATIDE DISPOSABLE DEVICE (EXENATIDE PEN) [Concomitant]
  4. GLIMEPIRIDE [Concomitant]
  5. COZAAR [Concomitant]

REACTIONS (5)
  - CARPAL TUNNEL SYNDROME [None]
  - CLAUSTROPHOBIA [None]
  - PAIN [None]
  - PLANTAR FASCIITIS [None]
  - ROAD TRAFFIC ACCIDENT [None]
